FAERS Safety Report 5147560-3 (Version None)
Quarter: 2006Q4

REPORT INFORMATION
  Report Type: 
  Country: None (occurrence: None)
  Receive Date: 20061106
  Receipt Date: 20061024
  Transmission Date: 20070319
  Serious: Yes (Other)
  Sender: FDA-Public Use
  Company Number: 2006133449

PATIENT
  Age: 31 Year
  Sex: Male
  Weight: 79.3795 kg

DRUGS (2)
  1. VIAGRA [Suspect]
     Indication: DRUG USE FOR UNKNOWN INDICATION
     Dates: start: 20061023
  2. VITAMINS [Concomitant]

REACTIONS (4)
  - GENITAL PAIN [None]
  - OEDEMA GENITAL [None]
  - PENIS DISORDER [None]
  - SELF-MEDICATION [None]
